FAERS Safety Report 17999628 (Version 2)
Quarter: 2020Q3

REPORT INFORMATION
  Report Type: Spontaneous
  Country: GB (occurrence: GB)
  Receive Date: 20200709
  Receipt Date: 20200723
  Transmission Date: 20201103
  Serious: Yes (Other)
  Sender: FDA-Public Use
  Company Number: GB-SUN PHARMACEUTICAL INDUSTRIES LTD-2020RR-252001

PATIENT
  Age: 64 Year
  Sex: Male

DRUGS (2)
  1. CONTIFLO XL 400 MICROGRAMS CAPSULES [Suspect]
     Active Substance: TAMSULOSIN
     Indication: PRODUCT USED FOR UNKNOWN INDICATION
     Dosage: ONCE DAILY
     Route: 065
     Dates: start: 202005
  2. CONTIFLO XL 400 MICROGRAMS CAPSULES [Suspect]
     Active Substance: TAMSULOSIN
     Dosage: TWICE DAILY
     Route: 065
     Dates: start: 202006

REACTIONS (2)
  - Product substitution issue [Unknown]
  - Drug ineffective [Unknown]
